FAERS Safety Report 5874480-9 (Version None)
Quarter: 2008Q3

REPORT INFORMATION
  Report Type: 
  Country: None (occurrence: None)
  Receive Date: 20080909
  Receipt Date: 20080801
  Transmission Date: 20090109
  Serious: Yes (Other)
  Sender: FDA-Public Use
  Company Number: PHBS2008BE05555

PATIENT

DRUGS (2)
  1. BROMOCRIPTINE MESYLATE [Suspect]
  2. QUINAGOLIDE [Suspect]

REACTIONS (1)
  - MITRAL VALVE DISEASE [None]
